FAERS Safety Report 7329538-4 (Version None)
Quarter: 2011Q1

REPORT INFORMATION
  Report Type: 
  Country: None (occurrence: None)
  Receive Date: 20110303
  Receipt Date: 20110224
  Transmission Date: 20110831
  Serious: Yes (Hospitalization)
  Sender: FDA-Public Use
  Company Number: US-CEPHALON-2011000988

PATIENT
  Age: 33 Year
  Sex: Female

DRUGS (2)
  1. FENTANYL CITRATE (MANUFACTURER UNKNOWN) [Suspect]
     Route: 002
  2. FENTANYL-100 [Suspect]
     Route: 062

REACTIONS (4)
  - SOMNOLENCE [None]
  - LOSS OF CONSCIOUSNESS [None]
  - ELECTROCARDIOGRAM QT PROLONGED [None]
  - INCORRECT ROUTE OF DRUG ADMINISTRATION [None]
